FAERS Safety Report 7684932-7 (Version None)
Quarter: 2011Q3

REPORT INFORMATION
  Report Type: 
  Country: None (occurrence: None)
  Receive Date: 20110816
  Receipt Date: 20110802
  Transmission Date: 20111222
  Serious: Yes (Hospitalization)
  Sender: FDA-Public Use
  Company Number: US-UCBSA-037519

PATIENT
  Sex: Female

DRUGS (2)
  1. KEPPRA XR [Suspect]
     Dosage: EVERY BEDTIME
     Dates: start: 20110401
  2. ZONEGRAN [Concomitant]
     Dosage: EVERY BEDTIME
     Dates: start: 20080101

REACTIONS (1)
  - PNEUMONIA [None]
